FAERS Safety Report 6599259-4 (Version None)
Quarter: 2010Q1

REPORT INFORMATION
  Report Type: 
  Country: None (occurrence: None)
  Receive Date: 20100224
  Receipt Date: 20100218
  Transmission Date: 20100710
  Serious: Yes (Other)
  Sender: FDA-Public Use
  Company Number: PHHY2009BR31609

PATIENT
  Sex: Female

DRUGS (7)
  1. EXELON [Suspect]
     Indication: DEMENTIA ALZHEIMER'S TYPE
     Dosage: 1 PATCH (9MG/5CM2) EVERY 24 HOURS
     Route: 062
     Dates: end: 20090701
  2. EXELON [Suspect]
     Dosage: 1 PATCH (18MG/10CM2) EVERY 24 HOURS
     Route: 062
     Dates: start: 20090701
  3. EXELON [Suspect]
     Dosage: 9MG/5CM2
     Route: 062
     Dates: end: 20090920
  4. EXELON [Suspect]
     Dosage: 18MG/10CM2
     Route: 062
     Dates: start: 20090921
  5. EXELON [Suspect]
     Indication: DEMENTIA ALZHEIMER'S TYPE
     Dosage: 3 MG, UNK
  6. EXELON [Suspect]
     Dosage: 1.5 MG, UNK
  7. RISPERIDONE [Concomitant]
     Dosage: 1/2 TABLET (1 MG) A DAY
     Route: 048

REACTIONS (7)
  - ABDOMINAL PAIN UPPER [None]
  - DEHYDRATION [None]
  - DYSPEPSIA [None]
  - FATIGUE [None]
  - NAUSEA [None]
  - VOMITING [None]
  - WEIGHT DECREASED [None]
